FAERS Safety Report 10062999 (Version 2)
Quarter: 2014Q2

REPORT INFORMATION
  Report Type: Report from Study
  Country: CA (occurrence: CA)
  Receive Date: 20140407
  Receipt Date: 20140607
  Transmission Date: 20141212
  Serious: Yes (Other)
  Sender: FDA-Public Use
  Company Number: CA-ABBVIE-14P-028-1219071-00

PATIENT
  Age: 85 Year
  Sex: Male
  Weight: 32.23 kg

DRUGS (3)
  1. LUPRON DEPOT [Suspect]
     Indication: PROSTATE CANCER
     Route: 030
     Dates: start: 20131218
  2. ZOLADEX [Concomitant]
     Indication: PROSTATE CANCER
     Dates: start: 201107, end: 201208
  3. CASODEX [Concomitant]
     Indication: PROSTATE CANCER
     Dates: start: 20140311

REACTIONS (2)
  - Neoplasm malignant [Unknown]
  - Metastases to bone [Unknown]
